FAERS Safety Report 18722490 (Version 1)
Quarter: 2021Q1

REPORT INFORMATION
  Report Type: Other
  Country: CA (occurrence: CA)
  Receive Date: 20210111
  Receipt Date: 20210111
  Transmission Date: 20210419
  Serious: Yes (Other)
  Sender: FDA-Public Use
  Company Number: CA-ACCORD-213636

PATIENT
  Sex: Female

DRUGS (1)
  1. METHOTREXATE. [Suspect]
     Active Substance: METHOTREXATE
     Indication: JUVENILE IDIOPATHIC ARTHRITIS
     Route: 058

REACTIONS (7)
  - Off label use [Unknown]
  - Salivary hypersecretion [Unknown]
  - Abdominal pain upper [Unknown]
  - Vomiting [Unknown]
  - Fear-related avoidance of activities [Unknown]
  - Behaviour disorder [Unknown]
  - Nausea [Unknown]
